FAERS Safety Report 19955262 (Version 1)
Quarter: 2021Q4

REPORT INFORMATION
  Report Type: Spontaneous
  Country: CA (occurrence: CA)
  Receive Date: 20211014
  Receipt Date: 20211014
  Transmission Date: 20220303
  Serious: Yes (Hospitalization, Other)
  Sender: FDA-Public Use
  Company Number: CA-PFIZER INC-202101316194

PATIENT
  Age: 49 Year
  Sex: Female

DRUGS (8)
  1. CLINDAMYCIN [Suspect]
     Active Substance: CLINDAMYCIN
     Dosage: UNK
     Route: 065
  2. HUMIRA [Suspect]
     Active Substance: ADALIMUMAB
     Indication: Hidradenitis
     Dosage: 40 MG, WEEKLY (1 EVERY 1 WEEKS)
     Route: 058
  3. BENZOYL PEROXIDE\CLINDAMYCIN PHOSPHATE [Suspect]
     Active Substance: BENZOYL PEROXIDE\CLINDAMYCIN PHOSPHATE
     Dosage: UNK
     Route: 061
  4. KEFLEX [Suspect]
     Active Substance: CEPHALEXIN
     Dosage: UNK
     Route: 065
  5. PROSCAR [Suspect]
     Active Substance: FINASTERIDE
     Dosage: UNK
     Route: 065
  6. ACCUTANE [Suspect]
     Active Substance: ISOTRETINOIN
     Dosage: UNK
     Route: 065
  7. MINOCYCLINE [Suspect]
     Active Substance: MINOCYCLINE HYDROCHLORIDE
     Dosage: UNK
     Route: 065
  8. RIFAMPIN [Suspect]
     Active Substance: RIFAMPIN
     Dosage: UNK
     Route: 065

REACTIONS (12)
  - Ophthalmoplegia [Unknown]
  - Myasthenia gravis [Unknown]
  - Demyelination [Unknown]
  - Chest discomfort [Unknown]
  - Diplopia [Unknown]
  - Hidradenitis [Unknown]
  - Nystagmus [Unknown]
  - Pilonidal cyst [Unknown]
  - Skin induration [Unknown]
  - Skin plaque [Unknown]
  - White matter lesion [Unknown]
  - Drug ineffective [Unknown]
